FAERS Safety Report 25795435 (Version 1)
Quarter: 2025Q3

REPORT INFORMATION
  Report Type: Spontaneous
  Country: EU (occurrence: EU)
  Receive Date: 20250912
  Receipt Date: 20250912
  Transmission Date: 20251020
  Serious: Yes (Other)
  Sender: RANBAXY
  Company Number: EU-CADRBFARM-2025336501

PATIENT
  Age: 30 Year
  Sex: Female
  Weight: 67 kg

DRUGS (2)
  1. SERTRALINE [Suspect]
     Active Substance: SERTRALINE HYDROCHLORIDE
     Indication: Premenstrual dysphoric disorder
     Route: 048
     Dates: start: 20250516, end: 20250527
  2. SERTRALINE [Suspect]
     Active Substance: SERTRALINE HYDROCHLORIDE
     Indication: Depression

REACTIONS (13)
  - Mental impairment [Unknown]
  - Rash [Unknown]
  - Swelling face [Unknown]
  - Lip swelling [Unknown]
  - Swollen tongue [Unknown]
  - Dysphagia [Unknown]
  - Hypersensitivity [Unknown]
  - Fatigue [Unknown]
  - Somnolence [Unknown]
  - Headache [Unknown]
  - Increased need for sleep [Unknown]
  - Pruritus [Unknown]
  - Sick leave [Unknown]

NARRATIVE: CASE EVENT DATE: 20250528
